FAERS Safety Report 9128795 (Version 1)
Quarter: 2013Q1

REPORT INFORMATION
  Report Type: Spontaneous
  Country: US (occurrence: US)
  Receive Date: 20130228
  Receipt Date: 20130228
  Transmission Date: 20140127
  Serious: No
  Sender: FDA-Public Use
  Company Number: US-009507513-1302USA010404

PATIENT
  Sex: Male

DRUGS (1)
  1. NASONEX [Suspect]
     Dosage: `UNK, QD
     Route: 045
     Dates: start: 20121227

REACTIONS (2)
  - Product quality issue [Unknown]
  - Drug dose omission [Unknown]
